FAERS Safety Report 9416352 (Version 1)
Quarter: 2013Q4

REPORT INFORMATION
  Report Type: Spontaneous
  Country: US (occurrence: None)
  Receive Date: 20130723
  Receipt Date: 20130723
  Transmission Date: 20140711
  Serious: Yes (Other)
  Sender: FDA-Public Use
  Company Number: None

PATIENT
  Age: 22 Year
  Sex: Male

DRUGS (2)
  1. TRAMADOL [Suspect]
     Indication: PAIN
  2. THERAMIINE [Suspect]
     Indication: PAIN

REACTIONS (1)
  - Convulsion [None]
